FAERS Safety Report 8415368-9 (Version None)
Quarter: 2012Q2

REPORT INFORMATION
  Report Type: 
  Country: None (occurrence: None)
  Receive Date: 20120606
  Receipt Date: 20120531
  Transmission Date: 20120825
  Serious: Yes (Other)
  Sender: FDA-Public Use
  Company Number: PHEH2012US011156

PATIENT
  Sex: Female

DRUGS (7)
  1. PHENOBARBITAL TAB [Concomitant]
     Indication: CONVULSION
     Dosage: 60 MG, ONCE/SINGLE
     Route: 048
  2. FELBATOL [Concomitant]
     Indication: CONVULSION
     Dosage: 800 MG, TID
     Route: 048
  3. LUPRON [Concomitant]
     Indication: CONVULSION
     Dosage: 7.5 MG, EVERY 28 DAYS
  4. RECLAST [Suspect]
     Indication: OSTEOPOROSIS
     Dosage: UNK UKN, UNK
     Route: 042
  5. ACIPHEX [Concomitant]
     Indication: GASTROOESOPHAGEAL REFLUX DISEASE
     Dosage: 20 MG, ONCE/SINGLE
     Route: 048
  6. LAMICTAL [Concomitant]
     Indication: CONVULSION
     Dosage: 5 MG, TID
     Route: 048
  7. DEPAKOTE [Concomitant]
     Indication: CONVULSION
     Dosage: 125 MG, UNK
     Route: 048

REACTIONS (2)
  - FOOT FRACTURE [None]
  - CONVULSION [None]
